FAERS Safety Report 5755330-8 (Version None)
Quarter: 2008Q2

REPORT INFORMATION
  Report Type: 
  Country: None (occurrence: None)
  Receive Date: 20080602
  Receipt Date: 20080319
  Transmission Date: 20081010
  Serious: Yes (Other)
  Sender: FDA-Public Use
  Company Number: ES-BAYER-200818946GPV

PATIENT
  Age: 30 Year
  Sex: Female

DRUGS (9)
  1. NIFEDIPINE [Suspect]
     Indication: TOCOLYSIS
     Dosage: AS USED: 20 MG
     Route: 048
  2. NIFEDIPINE [Suspect]
     Dosage: TOTAL DAILY DOSE: 40 MG
     Route: 060
  3. RINGER LACTATE [Concomitant]
     Indication: PROPHYLAXIS AGAINST DEHYDRATION
     Dosage: TOTAL DAILY DOSE: 500 ML
     Route: 042
  4. PANTOMICINA [Concomitant]
     Indication: DRUG USE FOR UNKNOWN INDICATION
     Dosage: TOTAL DAILY DOSE: 2 G
     Route: 042
  5. BETAMETASONA [Concomitant]
     Indication: DRUG USE FOR UNKNOWN INDICATION
     Dosage: TOTAL DAILY DOSE: 12 MG
     Route: 030
  6. RITODRINE HYDROCHLORIDE [Concomitant]
     Indication: TOCOLYSIS
     Route: 042
  7. RITODRINE HYDROCHLORIDE [Concomitant]
     Route: 042
  8. RITODRINE HYDROCHLORIDE [Concomitant]
     Route: 042
  9. DIAZEPAM [Concomitant]
     Indication: DRUG USE FOR UNKNOWN INDICATION
     Route: 030

REACTIONS (7)
  - ACUTE PULMONARY OEDEMA [None]
  - COUGH [None]
  - DYSPNOEA [None]
  - ERYTHEMA [None]
  - HYPOCAPNIA [None]
  - HYPOXIA [None]
  - TACHYCARDIA [None]
